FAERS Safety Report 4370958-8 (Version None)
Quarter: 2004Q2

REPORT INFORMATION
  Report Type: 
  Country: None (occurrence: None)
  Receive Date: 20040601
  Receipt Date: 20040519
  Transmission Date: 20050107
  Serious: Yes (Hospitalization)
  Sender: FDA-Public Use
  Company Number: 2004-02250

PATIENT
  Age: 58 Year
  Sex: Male

DRUGS (6)
  1. COLCHICINE (WATSON LABORATORIES) (COLCHICINE) TABLET, 0.6 MG [Suspect]
     Indication: GOUT
     Dosage: 3 MG/DAY FOR 2 DAYS, ORAL
     Route: 048
  2. ENALAPRIL MALEATE [Concomitant]
  3. FUROSEMIDE [Concomitant]
  4. DIGOXIN [Concomitant]
  5. CARVEDILOL [Concomitant]
  6. NITRATES [Concomitant]

REACTIONS (2)
  - CHILLS [None]
  - RHABDOMYOLYSIS [None]
